FAERS Safety Report 6556248-3 (Version None)
Quarter: 2010Q1

REPORT INFORMATION
  Report Type: 
  Country: None (occurrence: None)
  Receive Date: 20100128
  Receipt Date: 20090910
  Transmission Date: 20100710
  Serious: Yes (Other)
  Sender: FDA-Public Use
  Company Number: US-TEVA-207215USA

PATIENT
  Sex: Female
  Weight: 62.198 kg

DRUGS (8)
  1. COPAXONE [Suspect]
     Indication: MULTIPLE SCLEROSIS
     Route: 058
     Dates: start: 20040801
  2. TERAZOSIN HYDROCHLORIDE [Concomitant]
  3. GABAPENTIN [Concomitant]
  4. ATOMOXETINE HCL [Concomitant]
  5. MODAFINIL [Concomitant]
  6. ESCITALOPRAM OXALATE [Concomitant]
  7. GUAIFENESIN [Concomitant]
  8. LORATADINE [Concomitant]

REACTIONS (1)
  - BREAST CANCER [None]
